FAERS Safety Report 10230679 (Version 1)
Quarter: 2014Q2

REPORT INFORMATION
  Report Type: Spontaneous
  Country: US (occurrence: US)
  Receive Date: 20140611
  Receipt Date: 20140611
  Transmission Date: 20141212
  Serious: No
  Sender: FDA-Public Use
  Company Number: US-PFIZER INC-2014158576

PATIENT
  Age: 59 Year
  Sex: Female
  Weight: 58.96 kg

DRUGS (4)
  1. EFFEXOR XR [Suspect]
     Indication: ANXIETY
     Dosage: 37.5 MG, DAILY
     Dates: start: 201402, end: 2014
  2. EFFEXOR XR [Suspect]
     Dosage: 75 MG, DAILY
     Dates: start: 2014
  3. ALLEGRA [Concomitant]
     Dosage: UNK, EVERY 12 HOURS
  4. EXCEDRIN [Concomitant]
     Indication: NECK PAIN
     Dosage: UNK, 3X/DAY

REACTIONS (4)
  - Hyperhidrosis [Unknown]
  - Middle insomnia [Unknown]
  - Hot flush [Unknown]
  - Menopause [Unknown]
